FAERS Safety Report 4802995-0 (Version None)
Quarter: 2005Q4

REPORT INFORMATION
  Report Type: 
  Country: None (occurrence: None)
  Receive Date: 20051013
  Receipt Date: 20050927
  Transmission Date: 20060501
  Serious: Yes (Other)
  Sender: FDA-Public Use
  Company Number: USA0509107571

PATIENT
  Age: 59 Year
  Sex: Female

DRUGS (3)
  1. FORTEO [Suspect]
     Dates: start: 20040801
  2. METOPROLOL SUCCINATE [Concomitant]
  3. . [Concomitant]

REACTIONS (7)
  - BALANCE DISORDER [None]
  - BLOOD CALCIUM INCREASED [None]
  - CARDIAC MURMUR [None]
  - PERICARDIAL EFFUSION [None]
  - SINUS ARRHYTHMIA [None]
  - TINNITUS [None]
  - VITAMIN D DECREASED [None]
